FAERS Safety Report 25953437 (Version 1)
Quarter: 2025Q4

REPORT INFORMATION
  Report Type: Spontaneous
  Country: US (occurrence: US)
  Receive Date: 20251023
  Receipt Date: 20251023
  Transmission Date: 20260118
  Serious: Yes (Other)
  Sender: JOHNSON AND JOHNSON
  Company Number: US-VIIV HEALTHCARE-US2025133404

PATIENT
  Age: 4 Decade
  Sex: Male

DRUGS (2)
  1. CABENUVA [Suspect]
     Active Substance: CABOTEGRAVIR\RILPIVIRINE
     Indication: HIV infection
     Route: 065
  2. CABENUVA [Suspect]
     Active Substance: CABOTEGRAVIR\RILPIVIRINE
     Indication: HIV infection
     Route: 065

REACTIONS (3)
  - Pathogen resistance [Not Recovered/Not Resolved]
  - Viral load increased [Recovered/Resolved]
  - Viral mutation identified [Unknown]

NARRATIVE: CASE EVENT DATE: 20250701
